FAERS Safety Report 20423033 (Version 2)
Quarter: 2022Q1

REPORT INFORMATION
  Report Type: Spontaneous
  Country: MX (occurrence: MX)
  Receive Date: 20220203
  Receipt Date: 20220215
  Transmission Date: 20220423
  Serious: Yes (Other)
  Sender: FDA-Public Use
  Company Number: MX-PFIZER INC-202200165272

PATIENT
  Age: 24 Year
  Sex: Female

DRUGS (1)
  1. INFLIXIMAB [Suspect]
     Active Substance: INFLIXIMAB
     Indication: Proctitis ulcerative
     Dosage: 300 MG
     Route: 042
     Dates: start: 20220127, end: 20220127

REACTIONS (10)
  - Respiratory distress [Recovered/Resolved]
  - Oxygen saturation decreased [Recovered/Resolved]
  - Tachycardia [Unknown]
  - Blood pressure diastolic increased [Recovered/Resolved]
  - Rash [Recovered/Resolved]
  - Throat irritation [Recovered/Resolved]
  - Hyperhidrosis [Unknown]
  - Crying [Unknown]
  - Anxiety [Unknown]
  - Pruritus [Unknown]

NARRATIVE: CASE EVENT DATE: 20220127
